FAERS Safety Report 9783186 (Version 1)
Quarter: 2013Q4

REPORT INFORMATION
  Report Type: Spontaneous
  Country: FR (occurrence: None)
  Receive Date: 20131223
  Receipt Date: 20131223
  Transmission Date: 20140711
  Serious: Yes (Other)
  Sender: FDA-Public Use
  Company Number: 2013FR0500

PATIENT
  Sex: Male

DRUGS (1)
  1. KINERET (ANAKINRA), NOT AVAILABLE [Suspect]

REACTIONS (4)
  - Hepatic function abnormal [None]
  - Contusion [None]
  - Transaminases increased [None]
  - Gamma-glutamyltransferase increased [None]
